FAERS Safety Report 5824022-9 (Version None)
Quarter: 2008Q3

REPORT INFORMATION
  Report Type: 
  Country: None (occurrence: None)
  Receive Date: 20080728
  Receipt Date: 20080722
  Transmission Date: 20090109
  Serious: Yes (Hospitalization)
  Sender: FDA-Public Use
  Company Number: GB-RANBAXY-2008RR-16583

PATIENT

DRUGS (5)
  1. VERAPAMIL TABLETS BP 40MG [Suspect]
     Dosage: 40 MG, TID
     Route: 048
     Dates: start: 20080619, end: 20080703
  2. THEOPHYLLINE [Suspect]
     Indication: CHRONIC OBSTRUCTIVE PULMONARY DISEASE
     Dosage: 200 MG, BID
     Route: 048
     Dates: start: 20080619, end: 20080703
  3. ATORVASTATIN CALCIUM [Concomitant]
     Dosage: 20 MG, UNK
     Route: 048
  4. CARBOCYSTEINE [Concomitant]
     Dosage: 750 MG, TID
     Route: 048
  5. OMEPRAZOLE [Concomitant]
     Dosage: 20 MG, UNK
     Route: 048

REACTIONS (1)
  - HYPOKALAEMIA [None]
